FAERS Safety Report 5923753-X (Version None)
Quarter: 2008Q4

REPORT INFORMATION
  Report Type: 
  Country: None (occurrence: None)
  Receive Date: 20081020
  Receipt Date: 20081009
  Transmission Date: 20090506
  Serious: Yes (Other)
  Sender: FDA-Public Use
  Company Number: BR-JNJFOC-20081003042

PATIENT
  Sex: Female

DRUGS (2)
  1. REMICADE [Suspect]
     Indication: SPONDYLITIS
     Route: 042
  2. REMICADE [Suspect]
     Indication: CROHN'S DISEASE
     Route: 042

REACTIONS (2)
  - VAGINAL HAEMORRHAGE [None]
  - VENTRICULAR TACHYCARDIA [None]
